FAERS Safety Report 13647205 (Version 2)
Quarter: 2017Q2

REPORT INFORMATION
  Report Type: Spontaneous
  Country: US (occurrence: US)
  Receive Date: 20170613
  Receipt Date: 20170613
  Transmission Date: 20170830
  Serious: No
  Sender: FDA-Public Use
  Company Number: US-ALLERGAN-1715275US

PATIENT
  Sex: Female

DRUGS (1)
  1. LOESTRIN 1.5/30 21 DAY [Suspect]
     Active Substance: ETHINYL ESTRADIOL\NORETHINDRONE ACETATE
     Indication: HORMONE LEVEL ABNORMAL
     Dosage: 1 DF, QAM
     Route: 048

REACTIONS (4)
  - Dysmenorrhoea [Not Recovered/Not Resolved]
  - Amenorrhoea [None]
  - Off label use [Unknown]
  - Intentional product misuse [Unknown]
